FAERS Safety Report 15299089 (Version 1)
Quarter: 2018Q3

REPORT INFORMATION
  Report Type: Report from Study
  Country: CO (occurrence: CO)
  Receive Date: 20180821
  Receipt Date: 20180821
  Transmission Date: 20181010
  Serious: Yes (Hospitalization, Other)
  Sender: FDA-Public Use
  Company Number: CO-TOLMAR, INC.-2018CO008044

PATIENT

DRUGS (1)
  1. ELIGARD [Suspect]
     Active Substance: LEUPROLIDE ACETATE
     Indication: PROSTATE CANCER
     Dosage: 22.5 MG, UNK
     Route: 058
     Dates: start: 20180306, end: 20180621

REACTIONS (3)
  - Metastases to bone [Unknown]
  - Prostatic adenoma [Unknown]
  - Urinary retention [Unknown]

NARRATIVE: CASE EVENT DATE: 2018
